FAERS Safety Report 8384565-3 (Version None)
Quarter: 2012Q2

REPORT INFORMATION
  Report Type: 
  Country: None (occurrence: None)
  Receive Date: 20120524
  Receipt Date: 20120524
  Transmission Date: 20120825
  Serious: Yes (Death, Other)
  Sender: FDA-Public Use
  Company Number: ES-PFIZER INC-2012100810

PATIENT
  Age: 79 Year
  Sex: Female

DRUGS (11)
  1. OMEPRAZOLE [Concomitant]
     Dosage: UNK
     Route: 048
     Dates: start: 20101025
  2. FUROSEMIDE [Concomitant]
     Indication: HEART VALVE INCOMPETENCE
     Dosage: UNK
     Route: 048
     Dates: start: 20100426
  3. ALDACTONE [Suspect]
     Indication: GENERALISED OEDEMA
     Dosage: 100 MG, 1X/DAY
     Route: 048
     Dates: start: 20111117
  4. DIAMICRON [Concomitant]
     Indication: DIABETES MELLITUS
     Dosage: UNK
     Route: 048
     Dates: start: 20100419
  5. DIGOXIN [Concomitant]
     Indication: CARDIAC FAILURE
     Dosage: UNK
     Route: 048
     Dates: start: 20090803
  6. METFORMIN [Concomitant]
     Indication: DIABETES MELLITUS
     Route: 048
  7. NITROGLYCERIN [Concomitant]
     Indication: CARDIAC FAILURE
     Dosage: UNK
     Route: 062
     Dates: start: 20101018
  8. ALDACTONE [Suspect]
     Indication: CARDIAC FAILURE
     Dosage: 25 MG, 1X/DAY
     Route: 048
     Dates: end: 20111116
  9. CHLORTHALIDONE [Concomitant]
     Indication: CARDIAC FAILURE
     Dosage: 25 MG, 1X/DAY
     Route: 048
     Dates: start: 20111117
  10. TIRODRIL [Concomitant]
     Dosage: UNK
     Route: 048
     Dates: start: 20101018
  11. ENOXAPARIN SODIUM [Concomitant]
     Dosage: UNK
     Route: 058
     Dates: start: 20101018

REACTIONS (3)
  - HYPERKALAEMIA [None]
  - RENAL IMPAIRMENT [None]
  - DEATH [None]
